FAERS Safety Report 6317213-4 (Version None)
Quarter: 2009Q3

REPORT INFORMATION
  Report Type: 
  Country: None (occurrence: None)
  Receive Date: 20090819
  Receipt Date: 20090804
  Transmission Date: 20100115
  Serious: Yes (Hospitalization)
  Sender: FDA-Public Use
  Company Number: 2009SP017521

PATIENT
  Age: 31 Year
  Sex: Female

DRUGS (3)
  1. DEXAMETHASONE [Suspect]
     Indication: DRUG USE FOR UNKNOWN INDICATION
  2. IPILIMUMAB [Suspect]
     Indication: HODGKIN'S DISEASE
     Dosage: 3 MG/KG; Q3W; IV
     Route: 042
     Dates: start: 20090313, end: 20090423
  3. MYCOPHENOLATE MOFETIL [Suspect]
     Indication: DRUG USE FOR UNKNOWN INDICATION

REACTIONS (5)
  - CULTURE POSITIVE [None]
  - ENGRAFTMENT SYNDROME [None]
  - PNEUMONITIS [None]
  - PSEUDOMONAS INFECTION [None]
  - RESPIRATORY DISORDER [None]
